FAERS Safety Report 25259578 (Version 1)
Quarter: 2025Q2

REPORT INFORMATION
  Report Type: Spontaneous
  Country: US (occurrence: US)
  Receive Date: 20250501
  Receipt Date: 20250501
  Transmission Date: 20250717
  Serious: No
  Sender: ROCHE
  Company Number: US-ROCHE-10000272564

PATIENT
  Sex: Male
  Weight: 63.05 kg

DRUGS (1)
  1. HEMLIBRA [Suspect]
     Active Substance: EMICIZUMAB-KXWH
     Indication: Factor VIII deficiency
     Dosage: FORM STRENGTH: 105MG/0.7ML
     Route: 058
     Dates: start: 202304

REACTIONS (1)
  - Haemorrhage [Not Recovered/Not Resolved]
